FAERS Safety Report 4542863-5 (Version None)
Quarter: 2004Q4

REPORT INFORMATION
  Report Type: 
  Country: None (occurrence: None)
  Receive Date: 20041229
  Receipt Date: 20041220
  Transmission Date: 20050328
  Serious: Yes (Other)
  Sender: FDA-Public Use
  Company Number: 2004116472

PATIENT
  Sex: Female
  Weight: 79.8331 kg

DRUGS (5)
  1. LIPITOR [Suspect]
     Indication: BLOOD CHOLESTEROL
     Dosage: 10 MG (10 MG 1 IN 1 D) ORAL
     Route: 048
  2. CANDESARTAN CILEXETIL (CANDESARTAN CILEXETIL) [Concomitant]
  3. PRAMIPEXOLE (PRAMIPEXOLE) [Concomitant]
  4. RANITIDINE [Concomitant]
  5. ESOMEPRAZOLE (ESOMEPRAZOLE) [Concomitant]

REACTIONS (2)
  - CEREBROVASCULAR ACCIDENT [None]
  - TRANSIENT ISCHAEMIC ATTACK [None]
